FAERS Safety Report 22001538 (Version 2)
Quarter: 2023Q1

REPORT INFORMATION
  Report Type: Spontaneous
  Country: US (occurrence: US)
  Receive Date: 20230216
  Receipt Date: 20230331
  Transmission Date: 20230418
  Serious: No
  Sender: FDA-Public Use
  Company Number: US-PFIZER INC-202300068583

PATIENT
  Age: 61 Year
  Sex: Female
  Weight: 104.33 kg

DRUGS (5)
  1. XELJANZ XR [Suspect]
     Active Substance: TOFACITINIB CITRATE
     Indication: Rheumatoid arthritis
     Dosage: 11 MG, DAILY
     Route: 048
     Dates: start: 202204, end: 20230224
  2. XELJANZ XR [Suspect]
     Active Substance: TOFACITINIB CITRATE
     Dosage: 11 MG, DAILY
     Route: 048
     Dates: start: 20230311
  3. HYDROXYCHLOROQUINE [Concomitant]
     Active Substance: HYDROXYCHLOROQUINE
     Indication: Rheumatoid arthritis
     Dosage: 400 MG, DAILY
     Dates: start: 202009
  4. ARMOUR THYROID [Concomitant]
     Active Substance: THYROID, PORCINE
     Indication: Hypothyroidism
     Dosage: 60 MG, DAILY
  5. LEVOTHYROXINE [Concomitant]
     Active Substance: LEVOTHYROXINE
     Indication: Hypothyroidism
     Dosage: 112 UG, DAILY

REACTIONS (7)
  - Muscular weakness [Not Recovered/Not Resolved]
  - Arthralgia [Recovering/Resolving]
  - Condition aggravated [Not Recovered/Not Resolved]
  - Plantar fasciitis [Unknown]
  - Gait disturbance [Unknown]
  - Loss of personal independence in daily activities [Unknown]
  - Pain in extremity [Unknown]

NARRATIVE: CASE EVENT DATE: 20220701
